FAERS Safety Report 6260941-X (Version None)
Quarter: 2009Q3

REPORT INFORMATION
  Report Type: 
  Country: None (occurrence: None)
  Receive Date: 20090707
  Receipt Date: 20090616
  Transmission Date: 20100115
  Serious: Yes (Other)
  Sender: FDA-Public Use
  Company Number: 20090245

PATIENT
  Age: 29 Year
  Sex: Female
  Weight: 58.9676 kg

DRUGS (2)
  1. VENOFER [Suspect]
     Indication: IRON DEFICIENCY ANAEMIA
     Dosage: 200MG WEEKLY INTRAVENOUS
     Route: 042
     Dates: start: 20090526, end: 20090526
  2. VENOFER [Suspect]
     Indication: MALABSORPTION
     Dosage: 200MG WEEKLY INTRAVENOUS
     Route: 042
     Dates: start: 20090526, end: 20090526

REACTIONS (5)
  - ABDOMINAL PAIN [None]
  - BACK PAIN [None]
  - CHROMATURIA [None]
  - DIARRHOEA [None]
  - FLANK PAIN [None]
